FAERS Safety Report 4914516-2 (Version None)
Quarter: 2006Q1

REPORT INFORMATION
  Report Type: 
  Country: None (occurrence: None)
  Receive Date: 20060216
  Receipt Date: 20051017
  Transmission Date: 20060701
  Serious: Yes (Hospitalization)
  Sender: FDA-Public Use
  Company Number: US-MERCK-0510USA07756

PATIENT
  Age: 59 Year
  Sex: Female
  Weight: 73 kg

DRUGS (9)
  1. VIOXX [Suspect]
     Indication: ARTHRITIS
     Route: 048
     Dates: start: 20020301, end: 20030401
  2. ATENOLOL [Concomitant]
     Indication: HYPERTENSION
     Route: 065
     Dates: start: 20011001
  3. PAROXETINE [Concomitant]
     Indication: DEPRESSION
     Route: 065
     Dates: start: 19990201, end: 20020101
  4. LISINOPRIL [Concomitant]
     Route: 065
  5. FLONASE [Concomitant]
     Route: 065
  6. ALBUTEROL [Concomitant]
     Route: 065
  7. INSULIN [Concomitant]
     Indication: DIABETES MELLITUS
     Route: 065
  8. DOVONEX [Concomitant]
     Route: 065
  9. LANTUS [Concomitant]
     Indication: DIABETES MELLITUS
     Route: 065

REACTIONS (3)
  - BLOOD CHOLESTEROL INCREASED [None]
  - CEREBROVASCULAR ACCIDENT [None]
  - DEPRESSION [None]
